FAERS Safety Report 10076244 (Version 2)
Quarter: 2014Q2

REPORT INFORMATION
  Report Type: Spontaneous
  Country: US (occurrence: US)
  Receive Date: 20140414
  Receipt Date: 20140423
  Transmission Date: 20141212
  Serious: Yes (Hospitalization)
  Sender: FDA-Public Use
  Company Number: US-BAXTER-2014BAX017777

PATIENT
  Age: 65 Year
  Sex: Female

DRUGS (5)
  1. DIANEAL LOW CALCIUM [Suspect]
     Indication: PERITONEAL DIALYSIS
     Route: 033
     Dates: start: 20130325
  2. DIANEAL LOW CALCIUM [Suspect]
     Route: 033
     Dates: start: 20130325
  3. DIANEAL LOW CALCIUM [Suspect]
     Indication: PERITONEAL DIALYSIS
     Route: 033
     Dates: start: 20130325
  4. DIANEAL LOW CALCIUM [Suspect]
     Route: 033
     Dates: start: 20130325
  5. DIANEAL LOW CALCIUM (ULTRABAG) [Suspect]
     Indication: PERITONEAL DIALYSIS
     Route: 033

REACTIONS (2)
  - Gastric ulcer haemorrhage [Recovered/Resolved]
  - Hypotension [Recovered/Resolved]
